FAERS Safety Report 23271516 (Version 1)
Quarter: 2023Q4

REPORT INFORMATION
  Report Type: Report from Study
  Country: GB (occurrence: GB)
  Receive Date: 20231207
  Receipt Date: 20231207
  Transmission Date: 20240110
  Serious: Yes (Other)
  Sender: FDA-Public Use
  Company Number: GB-CURIUM-2023000946

PATIENT

DRUGS (1)
  1. IODINE I-131 [Suspect]
     Active Substance: IODINE I-131
     Indication: Graves^ disease
     Route: 048

REACTIONS (1)
  - Endocrine ophthalmopathy [Unknown]
